FAERS Safety Report 7814426-7 (Version None)
Quarter: 2011Q4

REPORT INFORMATION
  Report Type: 
  Country: None (occurrence: None)
  Receive Date: 20111014
  Receipt Date: 20111005
  Transmission Date: 20120403
  Serious: Yes (Other)
  Sender: FDA-Public Use
  Company Number: PHHY2011DE88482

PATIENT
  Sex: Male
  Weight: 72 kg

DRUGS (8)
  1. BISOPROLOL [Concomitant]
     Route: 065
  2. THYRONAJOD [Concomitant]
     Route: 065
  3. ZOMETA [Suspect]
     Indication: BONE DISORDER
     Dosage: 4 MG, EVERY 4 WEEKS
     Route: 042
     Dates: start: 20101103, end: 20110527
  4. SAMARIUM [Concomitant]
     Dosage: 2.5 GBQ, UNK
     Route: 042
  5. GEMCITABINE HYDROCHLORIDE [Concomitant]
     Dosage: 1830 MG, UNK
     Dates: start: 20101213, end: 20110328
  6. VINFLUNINE [Concomitant]
     Dosage: 458 MG, UNK
     Route: 065
     Dates: start: 20110527
  7. DEKRISTOL [Concomitant]
     Dates: start: 20110328
  8. PALLADONE [Concomitant]
     Dates: start: 20110608

REACTIONS (4)
  - RENAL FAILURE [None]
  - LYMPHANGIOSIS CARCINOMATOSA [None]
  - LYMPHOEDEMA [None]
  - PAIN [None]
